FAERS Safety Report 7216867-8 (Version None)
Quarter: 2010Q4

REPORT INFORMATION
  Report Type: 
  Country: None (occurrence: None)
  Receive Date: 20101230
  Receipt Date: 20101216
  Transmission Date: 20110411
  Serious: Yes (Life-Threatening)
  Sender: FDA-Public Use
  Company Number: 2010MA005429

PATIENT
  Age: 107 Year
  Sex: Male

DRUGS (1)
  1. FEVERALL [Suspect]
     Dates: start: 20101213

REACTIONS (1)
  - ANAPHYLACTIC REACTION [None]
